FAERS Safety Report 15748222 (Version 5)
Quarter: 2019Q2

REPORT INFORMATION
  Report Type: Report from Study
  Country: FR (occurrence: FR)
  Receive Date: 20181221
  Receipt Date: 20190618
  Transmission Date: 20190711
  Serious: Yes (Life-Threatening, Hospitalization)
  Sender: FDA-Public Use
  Company Number: FR-ROCHE-2232295

PATIENT
  Age: 72 Year
  Sex: Male
  Weight: 88 kg

DRUGS (8)
  1. NISISCO [Concomitant]
     Active Substance: HYDROCHLOROTHIAZIDE\VALSARTAN
     Indication: HYPERTENSION
  2. OBINUTUZUMAB. [Suspect]
     Active Substance: OBINUTUZUMAB
     Indication: DIFFUSE LARGE B-CELL LYMPHOMA
     Dosage: ON 05/DEC/2018, PATIENT ADMINISTERED MOST RECENT DOSE OF OBINUTUZUMAB BEFORE SERIOUS ADVERS EVENT.
     Route: 042
     Dates: start: 20181113
  3. FLECAINE [Concomitant]
     Active Substance: FLECAINIDE
     Indication: HYPERTENSION
  4. VENETOCLAX. [Suspect]
     Active Substance: VENETOCLAX
     Indication: DIFFUSE LARGE B-CELL LYMPHOMA
     Dosage: ON 08/DEC/2018, PATIENT ADMINISTERED MOST RECENT DOSE OF VENETOCLAX BEFORE SERIOUS ADVERS EVENT.
     Route: 065
     Dates: start: 20181120, end: 20181210
  5. ATEZOLIZUMAB. [Suspect]
     Active Substance: ATEZOLIZUMAB
     Indication: DIFFUSE LARGE B-CELL LYMPHOMA
     Dosage: ON 06/DEC/2018, PATIENT ADMINISTERED MOST RECENT DOSE OF ATEZOLIZUMAB BEFORE SERIOUS ADVERS EVENT.
     Route: 042
     Dates: start: 20181114
  6. LEVOTHYROX [Concomitant]
     Active Substance: LEVOTHYROXINE
     Indication: THYROID DISORDER
  7. CORDARONE [Concomitant]
     Active Substance: AMIODARONE HYDROCHLORIDE
     Indication: HYPERTENSION
  8. NOCTAMIDE [Concomitant]
     Active Substance: LORMETAZEPAM

REACTIONS (3)
  - Abdominal abscess [Not Recovered/Not Resolved]
  - Neoplasm malignant [Not Recovered/Not Resolved]
  - Cholangitis [Recovered/Resolved]

NARRATIVE: CASE EVENT DATE: 20181208
